FAERS Safety Report 17622196 (Version 1)
Quarter: 2020Q2

REPORT INFORMATION
  Report Type: Spontaneous
  Country: US (occurrence: US)
  Receive Date: 20200403
  Receipt Date: 20200403
  Transmission Date: 20200713
  Serious: No
  Sender: FDA-Public Use
  Company Number: US-SUNOVION-2020SUN001025

PATIENT
  Sex: Male

DRUGS (2)
  1. BROVANA [Suspect]
     Active Substance: ARFORMOTEROL TARTRATE
     Indication: CHRONIC OBSTRUCTIVE PULMONARY DISEASE
     Dosage: 15 ?G/2ML
     Route: 055
  2. BROVANA [Suspect]
     Active Substance: ARFORMOTEROL TARTRATE
     Dosage: 2 ML, 4 VIALS A DAY
     Route: 055

REACTIONS (5)
  - Feeling abnormal [Unknown]
  - Overdose [Unknown]
  - Drug ineffective [Unknown]
  - Dyskinesia [Unknown]
  - Dyspnoea [Unknown]
